FAERS Safety Report 23276721 (Version 1)
Quarter: 2023Q4

REPORT INFORMATION
  Report Type: Spontaneous
  Country: US (occurrence: US)
  Receive Date: 20231208
  Receipt Date: 20231208
  Transmission Date: 20240110
  Serious: No
  Sender: FDA-Public Use
  Company Number: US-MYLANLABS-2023M1127647

PATIENT
  Age: 26 Year
  Sex: Female
  Weight: 49.9 kg

DRUGS (2)
  1. XULANE [Suspect]
     Active Substance: ETHINYL ESTRADIOL\NORELGESTROMIN
     Indication: Contraception
     Dosage: UNK UNK, QW
     Route: 062
     Dates: start: 202307, end: 20231130
  2. CITALOPRAM [Concomitant]
     Active Substance: CITALOPRAM HYDROBROMIDE
     Indication: Anxiety
     Dosage: 10 MILLIGRAM, QD
     Route: 065

REACTIONS (4)
  - Application site erythema [Unknown]
  - Application site exfoliation [Unknown]
  - Application site vesicles [Recovered/Resolved]
  - Product adhesion issue [Unknown]

NARRATIVE: CASE EVENT DATE: 20231108
